FAERS Safety Report 24860584 (Version 1)
Quarter: 2025Q1

REPORT INFORMATION
  Report Type: Spontaneous
  Country: FR (occurrence: FR)
  Receive Date: 20250120
  Receipt Date: 20250120
  Transmission Date: 20250409
  Serious: Yes (Life-Threatening, Disabling, Other)
  Sender: CHEPLAPHARM
  Company Number: None

PATIENT
  Age: 33 Year
  Sex: Female
  Weight: 86 kg

DRUGS (9)
  1. CLONAZEPAM [Suspect]
     Active Substance: CLONAZEPAM
     Indication: Facial pain
     Dosage: EVERY 1 DAY
     Route: 048
  2. ESOMEPRAZOLE [Suspect]
     Active Substance: ESOMEPRAZOLE
     Indication: Abdominal discomfort
     Dosage: 40 MILLIGRAM, 1/DAY; DOSE FORM: GASTRO-RESISTANT TABLET?DAILY DOSE: 40 MILLIGRAM
     Route: 048
  3. ASTRAZENECA COVID-19 VACCINE [Suspect]
     Active Substance: AZD-1222
     Indication: Product used for unknown indication
     Route: 030
  4. ELIQUIS [Suspect]
     Active Substance: APIXABAN
     Indication: Thrombosis
     Route: 048
  5. ELIQUIS [Suspect]
     Active Substance: APIXABAN
     Indication: Phlebitis
     Route: 048
  6. LYRICA [Suspect]
     Active Substance: PREGABALIN
     Indication: Facial pain
     Route: 048
  7. TRAMADOL [Concomitant]
     Active Substance: TRAMADOL
     Indication: Pain
     Route: 048
  8. Temesta [Concomitant]
     Indication: Insomnia
     Route: 048
  9. DESOBEL [Concomitant]
     Indication: Ill-defined disorder
     Dosage: DAILY DOSE: 30 MILLIGRAM
     Route: 048

REACTIONS (6)
  - Staphylococcal skin infection [Unknown]
  - Phlebitis [Not Recovered/Not Resolved]
  - Thrombosis [Not Recovered/Not Resolved]
  - Arthropathy [Unknown]
  - Intervertebral disc protrusion [Unknown]
  - Off label use [Unknown]

NARRATIVE: CASE EVENT DATE: 20231012
